FAERS Safety Report 4835152-2 (Version None)
Quarter: 2005Q4

REPORT INFORMATION
  Report Type: 
  Country: None (occurrence: None)
  Receive Date: 20051114
  Receipt Date: 20051114
  Transmission Date: 20060501
  Serious: Yes (Death)
  Sender: FDA-Public Use
  Company Number: 2005AL004031

PATIENT
  Age: 24 Year
  Sex: 0

DRUGS (3)
  1. CHLORPROMAZINE HYDROCHLORIDE CONCENTRATE [Suspect]
     Dosage: UNKNOWN
     Route: 065
  2. AMITRIPTYLINE HCL [Suspect]
     Dosage: UNKNOWN
     Route: 065
  3. ESCITALOPRAM OXALATE [Suspect]
     Dosage: UNKNOWN
     Route: 065

REACTIONS (2)
  - COMPLETED SUICIDE [None]
  - OVERDOSE [None]
